FAERS Safety Report 10231505 (Version 1)
Quarter: 2014Q2

REPORT INFORMATION
  Report Type: Spontaneous
  Country: FR (occurrence: FR)
  Receive Date: 20140611
  Receipt Date: 20140611
  Transmission Date: 20141212
  Serious: Yes (Death)
  Sender: FDA-Public Use
  Company Number: FR-GILEAD-2014-0104154

PATIENT
  Age: 12 Year
  Sex: Male

DRUGS (3)
  1. VISTIDE [Suspect]
     Dosage: UNK
     Route: 042
     Dates: start: 200101
  2. VISTIDE [Suspect]
     Dosage: 7,5 MG/ML, FROM 10 TO 20 ML EACH TIME
     Route: 042
     Dates: start: 200204
  3. VISTIDE [Suspect]
     Dosage: 30 MG, AEROSOLS
     Dates: start: 200707, end: 200709

REACTIONS (1)
  - Drug ineffective for unapproved indication [Fatal]
